FAERS Safety Report 5295181-4 (Version None)
Quarter: 2007Q2

REPORT INFORMATION
  Report Type: 
  Country: None (occurrence: None)
  Receive Date: 20070412
  Receipt Date: 20070404
  Transmission Date: 20071010
  Serious: Yes (Hospitalization)
  Sender: FDA-Public Use
  Company Number: FR-ELI_LILLY_AND_COMPANY-FR200704001196

PATIENT
  Age: 59 Year
  Sex: Male
  Weight: 66 kg

DRUGS (4)
  1. PEMETREXED [Suspect]
     Indication: NON-SMALL CELL LUNG CANCER
     Dosage: 900 MG, OTHER
     Route: 042
     Dates: start: 20070222
  2. FOLIC ACID [Concomitant]
     Indication: VITAMIN SUPPLEMENTATION
     Dosage: 0.3 UG, DAILY (1/D)
     Route: 048
     Dates: start: 20070123
  3. VITAMIN B-12 [Concomitant]
     Indication: VITAMIN SUPPLEMENTATION
     Route: 030
  4. CORTICOSTEROID NOS [Concomitant]
     Indication: PROPHYLAXIS
     Route: 065

REACTIONS (2)
  - DEHYDRATION [None]
  - GENERAL PHYSICAL HEALTH DETERIORATION [None]
